FAERS Safety Report 5717988-9 (Version None)
Quarter: 2008Q2

REPORT INFORMATION
  Report Type: 
  Country: None (occurrence: None)
  Receive Date: 20080425
  Receipt Date: 20080418
  Transmission Date: 20081010
  Serious: Yes (Hospitalization)
  Sender: FDA-Public Use
  Company Number: B0498286A

PATIENT
  Sex: Female
  Weight: 70 kg

DRUGS (3)
  1. TOPOTECAN [Suspect]
     Indication: NEOPLASM MALIGNANT
     Route: 042
     Dates: start: 20070903
  2. ATENOLOL [Concomitant]
     Indication: HYPERTONIA
     Dosage: 50MG PER DAY
     Route: 048
     Dates: start: 20051001
  3. BUPRENORPHINE HCL [Concomitant]
     Indication: BONE PAIN

REACTIONS (6)
  - ALANINE AMINOTRANSFERASE INCREASED [None]
  - ASPARTATE AMINOTRANSFERASE INCREASED [None]
  - FATIGUE [None]
  - MUCOSAL INFLAMMATION [None]
  - NAUSEA [None]
  - VOMITING [None]
